FAERS Safety Report 25472167 (Version 1)
Quarter: 2025Q2

REPORT INFORMATION
  Report Type: Spontaneous
  Country: GB (occurrence: GB)
  Receive Date: 20250624
  Receipt Date: 20250624
  Transmission Date: 20250716
  Serious: Yes (Congenital Anomaly, Other)
  Sender: AUROBINDO
  Company Number: GB-MHRA-MED-202506091117597960-HMRWP

PATIENT
  Sex: Female

DRUGS (1)
  1. TOPIRAMATE [Suspect]
     Active Substance: TOPIRAMATE
     Indication: Adverse drug reaction
     Route: 065

REACTIONS (1)
  - Teratogenicity [Unknown]

NARRATIVE: CASE EVENT DATE: 20180101
